FAERS Safety Report 13239200 (Version 1)
Quarter: 2017Q1

REPORT INFORMATION
  Report Type: Spontaneous
  Country: US (occurrence: US)
  Receive Date: 20170216
  Receipt Date: 20170216
  Transmission Date: 20170428
  Serious: No
  Sender: FDA-Public Use
  Company Number: US-ASTRAZENECA-2017SE15429

PATIENT
  Age: 72 Year
  Sex: Male
  Weight: 84.8 kg

DRUGS (1)
  1. PULMICORT FLEXHALER [Suspect]
     Active Substance: BUDESONIDE
     Indication: ASTHMA
     Dosage: 180 MCG, 2 INHALATIONS, DAILY
     Route: 055
     Dates: start: 2007

REACTIONS (9)
  - Sinusitis [Unknown]
  - Product use issue [Unknown]
  - Device issue [Unknown]
  - Intentional product misuse [Unknown]
  - Off label use [Unknown]
  - Circumstance or information capable of leading to medication error [Unknown]
  - Total lung capacity decreased [Unknown]
  - Nasopharyngitis [Unknown]
  - Drug dose omission [Unknown]

NARRATIVE: CASE EVENT DATE: 2007
